FAERS Safety Report 15598373 (Version 3)
Quarter: 2023Q1

REPORT INFORMATION
  Report Type: Report from Study
  Country: JP (occurrence: JP)
  Receive Date: 20181108
  Receipt Date: 20230330
  Transmission Date: 20230418
  Serious: Yes (Hospitalization, Other)
  Sender: FDA-Public Use
  Company Number: JP-SA-2016SA135577

PATIENT
  Age: 71 Year
  Sex: Male
  Weight: 60.8 kg

DRUGS (36)
  1. ALEMTUZUMAB [Suspect]
     Active Substance: ALEMTUZUMAB
     Indication: T-cell prolymphocytic leukaemia
     Dosage: 20 MG
     Route: 042
     Dates: start: 20160812, end: 20160812
  2. ALEMTUZUMAB [Suspect]
     Active Substance: ALEMTUZUMAB
     Dosage: 10 MG
     Route: 042
     Dates: start: 20160829, end: 20160829
  3. ALEMTUZUMAB [Suspect]
     Active Substance: ALEMTUZUMAB
     Dosage: 30 MG
     Route: 042
     Dates: start: 20160722, end: 20160722
  4. ALEMTUZUMAB [Suspect]
     Active Substance: ALEMTUZUMAB
     Dosage: 3 MG
     Route: 042
     Dates: start: 20160719, end: 20160719
  5. ALEMTUZUMAB [Suspect]
     Active Substance: ALEMTUZUMAB
     Dosage: 10 MG
     Route: 042
     Dates: start: 20160720, end: 20160720
  6. ALEMTUZUMAB [Suspect]
     Active Substance: ALEMTUZUMAB
     Dosage: 20 MG
     Route: 042
     Dates: start: 20160805, end: 20160805
  7. ALEMTUZUMAB [Suspect]
     Active Substance: ALEMTUZUMAB
     Dosage: 30 MG
     Route: 042
     Dates: start: 20161028, end: 20161028
  8. ALEMTUZUMAB [Suspect]
     Active Substance: ALEMTUZUMAB
     Dosage: 10 MG
     Route: 042
     Dates: start: 20160727, end: 20160727
  9. ALEMTUZUMAB [Suspect]
     Active Substance: ALEMTUZUMAB
     Dosage: 20 MG
     Route: 042
     Dates: start: 20160729, end: 20160729
  10. ALEMTUZUMAB [Suspect]
     Active Substance: ALEMTUZUMAB
     Dosage: 30 MG
     Route: 042
     Dates: start: 20160801, end: 20160801
  11. ALEMTUZUMAB [Suspect]
     Active Substance: ALEMTUZUMAB
     Dosage: 20 MG
     Route: 042
     Dates: start: 20160803, end: 20160803
  12. ALEMTUZUMAB [Suspect]
     Active Substance: ALEMTUZUMAB
     Dosage: 10 MG
     Route: 042
     Dates: start: 20160810, end: 20160810
  13. ALEMTUZUMAB [Suspect]
     Active Substance: ALEMTUZUMAB
     Dosage: 3 MG
     Route: 042
     Dates: start: 20160822, end: 20160822
  14. ALEMTUZUMAB [Suspect]
     Active Substance: ALEMTUZUMAB
     Dosage: 3 MG
     Route: 042
     Dates: start: 20160824, end: 20160824
  15. ALEMTUZUMAB [Suspect]
     Active Substance: ALEMTUZUMAB
     Dosage: 3 MG
     Route: 042
     Dates: start: 20160826, end: 20160826
  16. ALEMTUZUMAB [Suspect]
     Active Substance: ALEMTUZUMAB
     Dosage: 3 MG
     Route: 042
     Dates: start: 20160920, end: 20160920
  17. ALEMTUZUMAB [Suspect]
     Active Substance: ALEMTUZUMAB
     Dosage: 10 MG
     Route: 042
     Dates: start: 20160921, end: 20160921
  18. ALEMTUZUMAB [Suspect]
     Active Substance: ALEMTUZUMAB
     Dosage: 30 MG
     Route: 042
     Dates: start: 20160926, end: 20160926
  19. ALEMTUZUMAB [Suspect]
     Active Substance: ALEMTUZUMAB
     Dosage: 30 MG
     Route: 042
     Dates: start: 20160928, end: 20160928
  20. ALEMTUZUMAB [Suspect]
     Active Substance: ALEMTUZUMAB
     Dosage: 30 MG
     Route: 042
     Dates: start: 20161003, end: 20161003
  21. ALEMTUZUMAB [Suspect]
     Active Substance: ALEMTUZUMAB
     Dosage: 30 MG
     Route: 042
     Dates: start: 20161005, end: 20161005
  22. ALEMTUZUMAB [Suspect]
     Active Substance: ALEMTUZUMAB
     Dosage: 30 MG
     Route: 042
     Dates: start: 20161007, end: 20161007
  23. ALEMTUZUMAB [Suspect]
     Active Substance: ALEMTUZUMAB
     Dosage: 30 MG
     Route: 042
     Dates: start: 20161010, end: 20161010
  24. ALEMTUZUMAB [Suspect]
     Active Substance: ALEMTUZUMAB
     Dosage: 30 MG
     Route: 042
     Dates: start: 20161012, end: 20161012
  25. ALEMTUZUMAB [Suspect]
     Active Substance: ALEMTUZUMAB
     Dosage: 30 MG
     Route: 042
     Dates: start: 20161014, end: 20161014
  26. ALEMTUZUMAB [Suspect]
     Active Substance: ALEMTUZUMAB
     Dosage: 30 MG
     Route: 042
     Dates: start: 20161017, end: 20161017
  27. ALEMTUZUMAB [Suspect]
     Active Substance: ALEMTUZUMAB
     Dosage: 30 MG
     Route: 042
     Dates: start: 20161019, end: 20161019
  28. ALEMTUZUMAB [Suspect]
     Active Substance: ALEMTUZUMAB
     Dosage: 30 MG
     Route: 042
     Dates: start: 20161021, end: 20161021
  29. ALEMTUZUMAB [Suspect]
     Active Substance: ALEMTUZUMAB
     Dosage: 30 MG
     Route: 042
     Dates: start: 20161024, end: 20161024
  30. ALEMTUZUMAB [Suspect]
     Active Substance: ALEMTUZUMAB
     Dosage: 30 MG
     Route: 042
     Dates: start: 20161026, end: 20161026
  31. ALEMTUZUMAB [Suspect]
     Active Substance: ALEMTUZUMAB
     Dosage: 30 MG
     Route: 042
     Dates: start: 20160930, end: 20160930
  32. SULFAMETHOXAZOLE\TRIMETHOPRIM [Suspect]
     Active Substance: SULFAMETHOXAZOLE\TRIMETHOPRIM
     Indication: T-cell prolymphocytic leukaemia
     Dosage: 480 MG, BID
     Route: 048
     Dates: start: 20160719
  33. VALACYCLOVIR HYDROCHLORIDE [Suspect]
     Active Substance: VALACYCLOVIR HYDROCHLORIDE
     Indication: T-cell prolymphocytic leukaemia
     Dosage: 500 MG, BID
     Route: 048
     Dates: start: 20160719
  34. SOLU-CORTEF [Concomitant]
     Active Substance: HYDROCORTISONE SODIUM SUCCINATE
     Indication: T-cell prolymphocytic leukaemia
     Dosage: 200 MG, QD
     Route: 041
     Dates: start: 20160719
  35. SOLU-CORTEF [Concomitant]
     Active Substance: HYDROCORTISONE SODIUM SUCCINATE
     Indication: Anaphylactic reaction
  36. PREDNISOLONE [Concomitant]
     Active Substance: PREDNISOLONE
     Indication: T-cell prolymphocytic leukaemia
     Dosage: 30 MG, BID
     Route: 048
     Dates: start: 20160726

REACTIONS (13)
  - Pneumothorax [Recovered/Resolved]
  - Cytomegalovirus infection [Recovering/Resolving]
  - Anaphylactic reaction [Recovering/Resolving]
  - Wheezing [Recovering/Resolving]
  - Hypoxia [Recovering/Resolving]
  - Respiratory failure [Recovering/Resolving]
  - Erythema [Recovering/Resolving]
  - Bronchospasm [Recovering/Resolving]
  - Anaemia [Recovering/Resolving]
  - Platelet count decreased [Recovered/Resolved]
  - Pleural effusion [Recovering/Resolving]
  - Pleural effusion [Recovering/Resolving]
  - Pyrexia [Recovered/Resolved]

NARRATIVE: CASE EVENT DATE: 20160723
